FAERS Safety Report 6432846-2 (Version None)
Quarter: 2009Q4

REPORT INFORMATION
  Report Type: 
  Country: None (occurrence: None)
  Receive Date: 20091109
  Receipt Date: 20091102
  Transmission Date: 20100525
  Serious: Yes (Hospitalization, Other)
  Sender: FDA-Public Use
  Company Number: B0601014A

PATIENT
  Age: 59 Year
  Sex: Male

DRUGS (3)
  1. AMOXICILLIN [Suspect]
     Route: 065
  2. CLARITHROMYCIN [Concomitant]
  3. OMEPRAZOLE [Concomitant]

REACTIONS (7)
  - DRUG ADMINISTRATION ERROR [None]
  - DYSPHAGIA [None]
  - FOREIGN BODY [None]
  - MUCOSAL ULCERATION [None]
  - OESOPHAGEAL STENOSIS [None]
  - OESOPHAGITIS [None]
  - SKIN LESION [None]
